FAERS Safety Report 4754006-3 (Version None)
Quarter: 2005Q3

REPORT INFORMATION
  Report Type: 
  Country: None (occurrence: None)
  Receive Date: 20050826
  Receipt Date: 20050310
  Transmission Date: 20060218
  Serious: Yes (Hospitalization)
  Sender: FDA-Public Use
  Company Number: US-MERCK-0503USA02100

PATIENT
  Age: 58 Year
  Sex: Male
  Weight: 76 kg

DRUGS (4)
  1. VIOXX [Suspect]
     Indication: PAIN
     Route: 048
     Dates: start: 20030807, end: 20040101
  2. VIOXX [Suspect]
     Route: 048
     Dates: start: 20040201, end: 20040301
  3. LIPITOR [Concomitant]
     Route: 065
     Dates: start: 20000101
  4. METHOTREXATE [Concomitant]
     Route: 065
     Dates: start: 19991201

REACTIONS (1)
  - MYOCARDIAL INFARCTION [None]
